FAERS Safety Report 23019099 (Version 1)
Quarter: 2023Q4

REPORT INFORMATION
  Report Type: Spontaneous
  Country: BE (occurrence: BE)
  Receive Date: 20231003
  Receipt Date: 20231003
  Transmission Date: 20240110
  Serious: Yes (Hospitalization)
  Sender: FDA-Public Use
  Company Number: None

PATIENT
  Sex: Female
  Weight: 80 kg

DRUGS (1)
  1. OZEMPIC [Suspect]
     Active Substance: SEMAGLUTIDE
     Indication: Obesity
     Dosage: 4M THERAPY: HEPATITIS 10M THERAPY: PANCREATITIS UNKNOWN
     Dates: start: 20230425, end: 20230908

REACTIONS (2)
  - Hepatitis [Recovering/Resolving]
  - Off label use [Recovering/Resolving]
